FAERS Safety Report 22304621 (Version 2)
Quarter: 2023Q2

REPORT INFORMATION
  Report Type: Report from Study
  Country: US (occurrence: None)
  Receive Date: 20230510
  Receipt Date: 20230515
  Transmission Date: 20230722
  Serious: Yes (Life-Threatening, Hospitalization, Other)
  Sender: FDA-Public Use
  Company Number: 2023A103499

PATIENT
  Age: 29021 Day
  Sex: Female

DRUGS (4)
  1. TAGRISSO [Suspect]
     Active Substance: OSIMERTINIB
     Indication: Non-small cell lung cancer
     Route: 048
     Dates: start: 20230301, end: 20230309
  2. TAGRISSO [Suspect]
     Active Substance: OSIMERTINIB
     Indication: Non-small cell lung cancer
     Route: 048
     Dates: start: 20230316, end: 20230409
  3. PENICILLIN [Suspect]
     Active Substance: PENICILLIN
  4. HYDROCODONE [Suspect]
     Active Substance: HYDROCODONE

REACTIONS (11)
  - Hypersensitivity [Unknown]
  - Pneumonia [Recovered/Resolved]
  - Wound [Unknown]
  - Skin burning sensation [Unknown]
  - Skin exfoliation [Unknown]
  - Rash [Unknown]
  - Nausea [Recovered/Resolved]
  - Seizure [Unknown]
  - Sepsis [Unknown]
  - Thermal burn [Unknown]
  - Blister [Unknown]

NARRATIVE: CASE EVENT DATE: 20230314
